FAERS Safety Report 23380877 (Version 1)
Quarter: 2024Q1

REPORT INFORMATION
  Report Type: Spontaneous
  Country: IT (occurrence: IT)
  Receive Date: 20240109
  Receipt Date: 20240109
  Transmission Date: 20240409
  Serious: Yes (Hospitalization, Other)
  Sender: FDA-Public Use
  Company Number: IT-MINISAL02-962852

PATIENT
  Age: 51 Year
  Sex: Male

DRUGS (1)
  1. AMOXICILLIN\CLAVULANIC ACID [Suspect]
     Active Substance: AMOXICILLIN\CLAVULANIC ACID
     Indication: Product used for unknown indication
     Dosage: DOSAGGIO: 1UNITA DI MISURA: GRAMMI FREQUENZA SOMMINISTRAZIONE: TOTALE VIA SOMMINISTRAZIONE: ORALE
     Route: 048
     Dates: start: 20231031, end: 20231031

REACTIONS (5)
  - Palatal oedema [Recovered/Resolved]
  - Malaise [Recovered/Resolved]
  - Macroglossia [Recovered/Resolved]
  - Hypoxia [Recovered/Resolved]
  - Vomiting [Recovered/Resolved]

NARRATIVE: CASE EVENT DATE: 20231031
